FAERS Safety Report 4386657-2 (Version None)
Quarter: 2004Q2

REPORT INFORMATION
  Report Type: 
  Country: None (occurrence: None)
  Receive Date: 20040623
  Receipt Date: 20040611
  Transmission Date: 20050107
  Serious: Yes (Death)
  Sender: FDA-Public Use
  Company Number: 163-20785-04050302

PATIENT
  Age: 82 Year
  Sex: Female

DRUGS (1)
  1. THALOMID [Suspect]
     Indication: MULTIPLE MYELOMA
     Dosage: 200 MG, DAILY, ORAL
     Route: 048
     Dates: start: 20040218, end: 20040331

REACTIONS (3)
  - BLOOD PRESSURE ABNORMAL [None]
  - CARDIAC FAILURE [None]
  - PNEUMONIA [None]
